FAERS Safety Report 17185202 (Version 1)
Quarter: 2019Q4

REPORT INFORMATION
  Report Type: Spontaneous
  Country: US (occurrence: US)
  Receive Date: 20191220
  Receipt Date: 20191220
  Transmission Date: 20200122
  Serious: No
  Sender: FDA-Public Use
  Company Number: US-KALA PHARAMACEUTICALS-2019KLA00036

PATIENT
  Age: 67 Year
  Sex: Male
  Weight: 77.1 kg

DRUGS (4)
  1. RETAINE NACL PRESERVATIVE FREE OINTMENT [Concomitant]
  2. COMBIGAN [Concomitant]
     Active Substance: BRIMONIDINE TARTRATE\TIMOLOL MALEATE
  3. INVELTYS [Suspect]
     Active Substance: LOTEPREDNOL ETABONATE
     Indication: PROPHYLAXIS AGAINST TRANSPLANT REJECTION
     Dosage: 1 DROP, 1X/DAY
     Dates: start: 20190702, end: 20190813
  4. RETAINE PRESERVATIVE FREE TEARS [Concomitant]

REACTIONS (5)
  - Erythema [Recovering/Resolving]
  - Incorrect product administration duration [Recovered/Resolved]
  - Pruritus [Recovering/Resolving]
  - Product use in unapproved indication [Recovered/Resolved]
  - Lacrimation increased [Recovering/Resolving]

NARRATIVE: CASE EVENT DATE: 20190702
